FAERS Safety Report 14141796 (Version 1)
Quarter: 2017Q4

REPORT INFORMATION
  Report Type: Spontaneous
  Country: US (occurrence: US)
  Receive Date: 20171030
  Receipt Date: 20171030
  Transmission Date: 20180321
  Serious: No
  Sender: FDA-Public Use
  Company Number: US-TEVA-817073USA

PATIENT
  Age: 85 Year
  Sex: Female

DRUGS (1)
  1. PROAIR HFA [Suspect]
     Active Substance: ALBUTEROL SULFATE

REACTIONS (7)
  - Fall [Unknown]
  - Nervous system disorder [Unknown]
  - Back disorder [Unknown]
  - Hypoacusis [Unknown]
  - Rib fracture [Unknown]
  - Limb mass [Unknown]
  - Adverse event [Unknown]

NARRATIVE: CASE EVENT DATE: 20161017
